FAERS Safety Report 10206491 (Version 1)
Quarter: 2014Q2

REPORT INFORMATION
  Report Type: Spontaneous
  Country: US (occurrence: None)
  Receive Date: 20140528
  Receipt Date: 20140528
  Transmission Date: 20141212
  Serious: No
  Sender: FDA-Public Use
  Company Number: None

PATIENT
  Sex: Female

DRUGS (3)
  1. NEURONTIN [Suspect]
  2. CYMBALTA [Concomitant]
     Indication: NEUROPATHY PERIPHERAL
  3. CYMBALTA [Concomitant]
     Indication: DEPRESSION

REACTIONS (2)
  - Vomiting [None]
  - Drug intolerance [None]
